FAERS Safety Report 4902484-9 (Version None)
Quarter: 2006Q1

REPORT INFORMATION
  Report Type: 
  Country: None (occurrence: None)
  Receive Date: 20060202
  Receipt Date: 20060127
  Transmission Date: 20060701
  Serious: Yes (Hospitalization)
  Sender: FDA-Public Use
  Company Number: FRWYE238615DEC05

PATIENT
  Age: 25 Year
  Sex: Female

DRUGS (11)
  1. ETHINYL ESTRADIOL AND LEVONORGESTREL [Suspect]
     Indication: ORAL CONTRACEPTION
     Dosage: 1 TABLET 1X PER 1 DAY
     Route: 048
  2. COLCHICINE (COLHICINE) [Suspect]
     Indication: APHTHOUS STOMATITIS
     Dosage: 1 MG 1X PER 1 DAY
     Route: 048
     Dates: start: 20041213, end: 20050621
  3. SPECIAFOLDINE (FOLIC ACID) [Suspect]
     Indication: APHTHOUS STOMATITIS
     Dosage: 5 MG 1 X PER 1 DAY
     Route: 048
     Dates: start: 20041213, end: 20050621
  4. THALIDOMIDE (THALIDOMIDE) [Suspect]
     Indication: APHTHOUS STOMATITIS
     Dosage: 50 MG DAILY, 50 MG EVERY OTHER DAY, 50 MG DAILY, 50 MG EVERY OTHER DAY
     Route: 048
     Dates: start: 20040203, end: 20040413
  5. THALIDOMIDE (THALIDOMIDE) [Suspect]
     Indication: EPISCLERITIS
     Dosage: 50 MG DAILY, 50 MG EVERY OTHER DAY, 50 MG DAILY, 50 MG EVERY OTHER DAY
     Route: 048
     Dates: start: 20040203, end: 20040413
  6. THALIDOMIDE (THALIDOMIDE) [Suspect]
     Indication: APHTHOUS STOMATITIS
     Dosage: 50 MG DAILY, 50 MG EVERY OTHER DAY, 50 MG DAILY, 50 MG EVERY OTHER DAY
     Route: 048
     Dates: start: 20040414, end: 20041015
  7. THALIDOMIDE (THALIDOMIDE) [Suspect]
     Indication: EPISCLERITIS
     Dosage: 50 MG DAILY, 50 MG EVERY OTHER DAY, 50 MG DAILY, 50 MG EVERY OTHER DAY
     Route: 048
     Dates: start: 20040414, end: 20041015
  8. THALIDOMIDE (THALIDOMIDE) [Suspect]
     Indication: APHTHOUS STOMATITIS
     Dosage: 50 MG DAILY, 50 MG EVERY OTHER DAY, 50 MG DAILY, 50 MG EVERY OTHER DAY
     Route: 048
     Dates: start: 20041016, end: 20041213
  9. THALIDOMIDE (THALIDOMIDE) [Suspect]
     Indication: EPISCLERITIS
     Dosage: 50 MG DAILY, 50 MG EVERY OTHER DAY, 50 MG DAILY, 50 MG EVERY OTHER DAY
     Route: 048
     Dates: start: 20041016, end: 20041213
  10. THALIDOMIDE (THALIDOMIDE) [Suspect]
     Indication: APHTHOUS STOMATITIS
     Dosage: 50 MG DAILY, 50 MG EVERY OTHER DAY, 50 MG DAILY, 50 MG EVERY OTHER DAY
     Route: 048
     Dates: start: 20041214
  11. THALIDOMIDE (THALIDOMIDE) [Suspect]
     Indication: EPISCLERITIS
     Dosage: 50 MG DAILY, 50 MG EVERY OTHER DAY, 50 MG DAILY, 50 MG EVERY OTHER DAY
     Route: 048
     Dates: start: 20041214

REACTIONS (8)
  - APHTHOUS STOMATITIS [None]
  - DISEASE RECURRENCE [None]
  - DRY EYE [None]
  - DRY SKIN [None]
  - ECZEMA [None]
  - ELECTROMYOGRAM ABNORMAL [None]
  - PARAESTHESIA [None]
  - PERIPHERAL SENSORY NEUROPATHY [None]
